FAERS Safety Report 18274367 (Version 2)
Quarter: 2020Q4

REPORT INFORMATION
  Report Type: Spontaneous
  Country: CL (occurrence: CL)
  Receive Date: 20200916
  Receipt Date: 20201001
  Transmission Date: 20210113
  Serious: Yes (Death, Hospitalization)
  Sender: FDA-Public Use
  Company Number: CL-BAXTER-2020BAX018947

PATIENT
  Sex: Male
  Weight: 87 kg

DRUGS (2)
  1. DIANEAL PD-2 PERITONEAL DIALYSIS SOLUTION WITH DEXTROSE [Suspect]
     Active Substance: CALCIUM CHLORIDE\DEXTROSE\MAGNESIUM CHLORIDE\SODIUM CHLORIDE\SODIUM LACTATE
     Indication: PERITONEAL DIALYSIS
     Dosage: INFUSION VOLUME, 1.30 HOURS OF PERMANENCE,  9 LITERS OF TOTAL VOLUME
     Route: 033
     Dates: start: 201910, end: 20200904
  2. INSULIN [Concomitant]
     Active Substance: INSULIN NOS
     Indication: PRODUCT USED FOR UNKNOWN INDICATION
     Dosage: LONG-ACTING
     Route: 065

REACTIONS (2)
  - Gastrointestinal haemorrhage [Fatal]
  - Peripheral ischaemia [Fatal]

NARRATIVE: CASE EVENT DATE: 20200828
